FAERS Safety Report 4649375-9 (Version None)
Quarter: 2005Q2

REPORT INFORMATION
  Report Type: 
  Country: None (occurrence: None)
  Receive Date: 20050428
  Receipt Date: 20050428
  Transmission Date: 20051028
  Serious: Yes (Other)
  Sender: FDA-Public Use
  Company Number: None

PATIENT
  Age: 27 Year
  Sex: Female
  Weight: 78.0187 kg

DRUGS (2)
  1. ESTRADIOL [Suspect]
     Indication: HYSTERECTOMY
     Dosage: CHANGE WEEKLY
     Dates: start: 20020701
  2. ESTRADIOL [Suspect]
     Indication: SALPINGO-OOPHORECTOMY BILATERAL
     Dosage: CHANGE WEEKLY
     Dates: start: 20020701

REACTIONS (4)
  - APPLICATION SITE REACTION [None]
  - DRUG INTOLERANCE [None]
  - HOT FLUSH [None]
  - SKIN REACTION [None]
